FAERS Safety Report 9519400 (Version 1)
Quarter: 2013Q1

REPORT INFORMATION
  Report Type: Spontaneous
  Country: US (occurrence: None)
  Receive Date: 20130305
  Receipt Date: 20130305
  Transmission Date: 20140127
  Serious: Yes (Other)
  Sender: FDA-Public Use
  Company Number: 163-21880-12063306

PATIENT
  Age: 92 Year
  Sex: Female
  Weight: 55.5 kg

DRUGS (3)
  1. REVLIMID (LENALIDOMIDE) (CAPSULES) [Suspect]
     Indication: MYELODYSPLASTIC SYNDROME
     Dosage: 10 MG, 1 IN 1 D, PO
     Route: 048
     Dates: start: 201010
  2. IBUPROFEN (IBUPROFEN) (UNKNOWN) [Concomitant]
  3. TAPAZOLE (THIAMAZOLE) (UNKNOWN) [Concomitant]

REACTIONS (4)
  - Diarrhoea [None]
  - Vulvovaginal burning sensation [None]
  - Oesophageal pain [None]
  - Abdominal discomfort [None]
